FAERS Safety Report 4597092-6 (Version None)
Quarter: 2005Q1

REPORT INFORMATION
  Report Type: 
  Country: None (occurrence: None)
  Receive Date: 20050301
  Receipt Date: 20050217
  Transmission Date: 20050727
  Serious: Yes (Death)
  Sender: FDA-Public Use
  Company Number: 2005033358

PATIENT
  Age: 30 Year
  Sex: Male

DRUGS (1)
  1. LINEZOLID SOLUTION, STERILE (LINEZOLID) [Suspect]
     Indication: BACTERIAL INFECTION
     Dosage: 1200 MG (600 MG, 2 IN 1 D), INTRAVENOUS
     Route: 042
     Dates: start: 20050216, end: 20050216

REACTIONS (1)
  - DEATH [None]
